FAERS Safety Report 14911001 (Version 2)
Quarter: 2018Q2

REPORT INFORMATION
  Report Type: Spontaneous
  Country: AR (occurrence: AR)
  Receive Date: 20180517
  Receipt Date: 20180530
  Transmission Date: 20180711
  Serious: Yes (Hospitalization, Other)
  Sender: FDA-Public Use
  Company Number: AR-ALEXION PHARMACEUTICALS INC.-A201806071

PATIENT
  Age: 17 Month
  Sex: Female
  Weight: 6.6 kg

DRUGS (4)
  1. MILRINONE [Concomitant]
     Active Substance: MILRINONE
     Indication: PRODUCT USED FOR UNKNOWN INDICATION
     Dosage: UNK
     Route: 065
     Dates: start: 201805
  2. NORADRENALINE                      /00127501/ [Concomitant]
     Active Substance: NOREPINEPHRINE
     Indication: PRODUCT USED FOR UNKNOWN INDICATION
     Dosage: UNK
     Route: 065
     Dates: start: 201805
  3. ADRENALINE                         /00003901/ [Concomitant]
     Active Substance: EPINEPHRINE
     Indication: PRODUCT USED FOR UNKNOWN INDICATION
     Dosage: UNK
     Route: 065
     Dates: start: 201805
  4. STRENSIQ [Suspect]
     Active Substance: ASFOTASE ALFA
     Indication: HYPOPHOSPHATASIA
     Dosage: 2 MG/KG, Q3W
     Route: 058
     Dates: start: 20170903

REACTIONS (16)
  - Alanine aminotransferase decreased [Unknown]
  - Haemoglobin decreased [Unknown]
  - Blood creatinine decreased [Unknown]
  - Blood alkaline phosphatase increased [Unknown]
  - Adenovirus infection [Recovered/Resolved]
  - Enterobacter infection [Recovered/Resolved]
  - Blood urea decreased [Unknown]
  - Aspartate aminotransferase increased [Unknown]
  - Acute respiratory failure [Unknown]
  - Septic shock [Unknown]
  - Hypoglycaemia [Unknown]
  - White blood cell count increased [Unknown]
  - Platelet count decreased [Unknown]
  - Pneumonia [Not Recovered/Not Resolved]
  - Partial seizures [Unknown]
  - Pyrexia [Unknown]

NARRATIVE: CASE EVENT DATE: 20180422
